FAERS Safety Report 26127917 (Version 1)
Quarter: 2025Q4

REPORT INFORMATION
  Report Type: Spontaneous
  Country: EU (occurrence: EU)
  Receive Date: 20251206
  Receipt Date: 20251206
  Transmission Date: 20260118
  Serious: Yes (Other)
  Sender: ACCORD
  Company Number: None

PATIENT
  Age: 64 Year
  Sex: Male

DRUGS (1)
  1. PACLITAXEL [Suspect]
     Active Substance: PACLITAXEL
     Indication: Product used for unknown indication
     Dates: start: 20251015, end: 20251015

REACTIONS (2)
  - Back pain [Recovered/Resolved]
  - Chest discomfort [Recovered/Resolved]

NARRATIVE: CASE EVENT DATE: 20251015
